FAERS Safety Report 4934152-1 (Version None)
Quarter: 2006Q1

REPORT INFORMATION
  Report Type: 
  Country: None (occurrence: None)
  Receive Date: 20060303
  Receipt Date: 20060224
  Transmission Date: 20060701
  Serious: Yes (Other)
  Sender: FDA-Public Use
  Company Number: 2006011649

PATIENT
  Age: 77 Year
  Sex: Male
  Weight: 97.0698 kg

DRUGS (4)
  1. NEURONTIN [Suspect]
     Indication: ILL-DEFINED DISORDER
     Dosage: 900 MG (300 MG, 3 IN 1 D), ORAL
     Route: 048
     Dates: start: 20010101, end: 20010101
  2. DARVOCET [Suspect]
     Indication: ILL-DEFINED DISORDER
  3. CARDIAC THERAPY (CARDIAC THERAPY) [Concomitant]
  4. HYDROCODONE BITARTRATE [Suspect]
     Indication: ILL-DEFINED DISORDER

REACTIONS (6)
  - ARTERIOPATHIC DISEASE [None]
  - HEPATOCELLULAR DAMAGE [None]
  - ILL-DEFINED DISORDER [None]
  - INJURY [None]
  - INVESTIGATION ABNORMAL [None]
  - RENAL DISORDER [None]
